FAERS Safety Report 7723951-9 (Version None)
Quarter: 2011Q3

REPORT INFORMATION
  Report Type: 
  Country: None (occurrence: None)
  Receive Date: 20110901
  Receipt Date: 20110819
  Transmission Date: 20111222
  Serious: Yes (Hospitalization, Other)
  Sender: FDA-Public Use
  Company Number: US-ELI_LILLY_AND_COMPANY-US201009007638

PATIENT
  Sex: Female

DRUGS (7)
  1. SYNTHROID [Concomitant]
  2. ANTIHYPERTENSIVES [Concomitant]
  3. PEPCID [Concomitant]
  4. LIPITOR [Concomitant]
  5. ASPIRIN [Concomitant]
  6. FORTEO [Suspect]
     Indication: OSTEOPOROSIS
     Dosage: 20 UG, DAILY (1/D)
  7. ISOSORBIDE DINITRATE [Concomitant]

REACTIONS (12)
  - DIZZINESS [None]
  - BLOOD CALCIUM INCREASED [None]
  - BALANCE DISORDER [None]
  - MEMORY IMPAIRMENT [None]
  - LOWER LIMB FRACTURE [None]
  - PRESYNCOPE [None]
  - VERTIGO [None]
  - ABASIA [None]
  - MALAISE [None]
  - UPPER LIMB FRACTURE [None]
  - ANKLE FRACTURE [None]
  - PNEUMONIA [None]
